FAERS Safety Report 7155871-5 (Version None)
Quarter: 2010Q4

REPORT INFORMATION
  Report Type: 
  Country: None (occurrence: None)
  Receive Date: 20101214
  Receipt Date: 20091102
  Transmission Date: 20110411
  Serious: No
  Sender: FDA-Public Use
  Company Number: US-MYLANLABS-2009S1019185

PATIENT
  Age: 80 Year
  Sex: Male
  Weight: 97.52 kg

DRUGS (2)
  1. FLURAZEPAM HYDROCHLORIDE [Suspect]
     Indication: INSOMNIA
     Route: 048
     Dates: start: 19990101
  2. ZESTRIL [Concomitant]
     Indication: BLOOD PRESSURE INCREASED
     Route: 048

REACTIONS (2)
  - POOR QUALITY SLEEP [None]
  - THERAPEUTIC RESPONSE DECREASED [None]
